FAERS Safety Report 24815896 (Version 1)
Quarter: 2025Q1

REPORT INFORMATION
  Report Type: Spontaneous
  Country: CN (occurrence: CN)
  Receive Date: 20250107
  Receipt Date: 20250107
  Transmission Date: 20250409
  Serious: Yes (Other)
  Sender: PFIZER
  Company Number: CN-PFIZER INC-PV202500000251

PATIENT
  Age: 45 Year
  Sex: Female

DRUGS (3)
  1. IDARUBICIN [Suspect]
     Active Substance: IDARUBICIN
     Indication: Acute myeloid leukaemia
     Dosage: 20 MG, 1X/DAY (D1-2)
     Route: 041
     Dates: start: 20241024, end: 20241025
  2. IDARUBICIN [Suspect]
     Active Substance: IDARUBICIN
     Dosage: 10 MG, 1X/DAY (D3)
     Route: 041
     Dates: start: 20241026
  3. CYTARABINE [Suspect]
     Active Substance: CYTARABINE
     Indication: Acute myeloid leukaemia
     Dosage: 200 MG, 1X/DAY (D1-7)
     Route: 041
     Dates: start: 20241024, end: 20241030

REACTIONS (4)
  - Drug-induced liver injury [Recovering/Resolving]
  - Hepatic function abnormal [Recovered/Resolved]
  - Off label use [Unknown]
  - Off label use [Unknown]

NARRATIVE: CASE EVENT DATE: 20241024
